FAERS Safety Report 7984123-6 (Version None)
Quarter: 2011Q4

REPORT INFORMATION
  Report Type: 
  Country: None (occurrence: None)
  Receive Date: 20111216
  Receipt Date: 20111214
  Transmission Date: 20120403
  Serious: No
  Sender: FDA-Public Use
  Company Number: US-PFIZER INC-2011304231

PATIENT
  Age: 77 Year
  Sex: Female

DRUGS (1)
  1. CELEBREX [Suspect]
     Indication: ARTHRITIS
     Dosage: 200 MG, UNK
     Dates: start: 20111122

REACTIONS (3)
  - PAIN [None]
  - FEELING ABNORMAL [None]
  - DRUG INEFFECTIVE [None]
